FAERS Safety Report 7721675-5 (Version None)
Quarter: 2011Q3

REPORT INFORMATION
  Report Type: 
  Country: None (occurrence: None)
  Receive Date: 20110831
  Receipt Date: 20110826
  Transmission Date: 20111222
  Serious: Yes (Other)
  Sender: FDA-Public Use
  Company Number: US-GLAXOSMITHKLINE-A0942526A

PATIENT
  Age: 80 Year
  Sex: Male

DRUGS (2)
  1. HORIZANT [Suspect]
     Indication: RESTLESS LEGS SYNDROME
     Dosage: 600MG SINGLE DOSE
     Route: 048
     Dates: start: 20110819, end: 20110819
  2. REQUIP [Concomitant]

REACTIONS (5)
  - DIZZINESS [None]
  - CONFUSIONAL STATE [None]
  - PELVIC FRACTURE [None]
  - INTESTINAL OBSTRUCTION [None]
  - FALL [None]
